FAERS Safety Report 13680940 (Version 1)
Quarter: 2017Q2

REPORT INFORMATION
  Report Type: Report from Study
  Country: None (occurrence: BR)
  Receive Date: 20170623
  Receipt Date: 20170623
  Transmission Date: 20170830
  Serious: Yes (Death, Hospitalization)
  Sender: FDA-Public Use
  Company Number: BR-ABBVIE-17K-020-2013667-00

PATIENT
  Age: 65 Year
  Sex: Female
  Weight: 45 kg

DRUGS (3)
  1. HUMIRA [Suspect]
     Active Substance: ADALIMUMAB
     Indication: RHEUMATOID ARTHRITIS
     Route: 058
     Dates: start: 20150422
  2. LOSARTAN. [Concomitant]
     Active Substance: LOSARTAN
     Indication: DISCOMFORT
     Route: 048
  3. OLCADIL [Concomitant]
     Active Substance: CLOXAZOLAM
     Indication: PRODUCT USED FOR UNKNOWN INDICATION
     Dosage: 1 OR 2 TABLETS DAILY
     Route: 048

REACTIONS (6)
  - Hospitalisation [Unknown]
  - Cardio-respiratory arrest [Fatal]
  - Rheumatoid arthritis [Fatal]
  - Cachexia [Fatal]
  - Malnutrition [Unknown]
  - Hospitalisation [Unknown]

NARRATIVE: CASE EVENT DATE: 2015
